FAERS Safety Report 7485507-5 (Version None)
Quarter: 2011Q2

REPORT INFORMATION
  Report Type: 
  Country: None (occurrence: None)
  Receive Date: 20110517
  Receipt Date: 20110512
  Transmission Date: 20111010
  Serious: Yes (Hospitalization, Other)
  Sender: FDA-Public Use
  Company Number: FR-SANOFI-AVENTIS-2011SA029640

PATIENT
  Age: 84 Year
  Sex: Male

DRUGS (13)
  1. MOTILIUM [Concomitant]
  2. INDAPAMIDE [Suspect]
     Route: 048
     Dates: start: 20110210, end: 20110228
  3. PRAVASTATIN [Concomitant]
  4. TRIMETAZIDINE HYDROCHLORIDE [Concomitant]
  5. ATHYMIL [Concomitant]
     Dates: start: 20110305
  6. EFFEXOR [Suspect]
     Indication: DEPRESSION
     Route: 048
     Dates: start: 20110205, end: 20110302
  7. ESCITALOPRAM [Suspect]
     Indication: DEPRESSION
     Route: 048
     Dates: start: 20110303, end: 20110305
  8. ESOMEPRAZOLE MAGNESIUM [Suspect]
     Route: 048
     Dates: end: 20110422
  9. DOXAZOSIN MESYLATE [Concomitant]
  10. ESCITALOPRAM [Suspect]
     Route: 048
     Dates: start: 20110330, end: 20110408
  11. AVODART [Concomitant]
  12. SPIRIVA [Concomitant]
  13. FORADIL [Concomitant]

REACTIONS (3)
  - HYPONATRAEMIA [None]
  - CONDITION AGGRAVATED [None]
  - SOMNOLENCE [None]
